FAERS Safety Report 5521666-9 (Version None)
Quarter: 2007Q4

REPORT INFORMATION
  Report Type: 
  Country: None (occurrence: None)
  Receive Date: 20071120
  Receipt Date: 20071115
  Transmission Date: 20080405
  Serious: Yes (Death, Hospitalization)
  Sender: FDA-Public Use
  Company Number: PHHO2007IT13702

PATIENT
  Age: 58 Year
  Sex: Male
  Weight: 102 kg

DRUGS (3)
  1. NEORAL [Suspect]
     Indication: LIVER TRANSPLANT
     Dosage: 790 MG/DAILY
     Route: 048
     Dates: start: 20070815
  2. NEORAL [Suspect]
     Dosage: 1590 MG/DAILY
     Route: 048
     Dates: start: 20070816, end: 20070817
  3. METHYLPREDNISOLONE [Concomitant]
     Indication: LIVER TRANSPLANT
     Dosage: 120 MG/DAILY
     Route: 048

REACTIONS (7)
  - BACTERIAL SEPSIS [None]
  - CEREBRAL HAEMORRHAGE [None]
  - CONCOMITANT DISEASE PROGRESSION [None]
  - FUNGAL SEPSIS [None]
  - GRAFT ISCHAEMIA [None]
  - MULTI-ORGAN FAILURE [None]
  - RENAL FAILURE ACUTE [None]
